FAERS Safety Report 7750982 (Version 2)
Quarter: 2012Q4

REPORT INFORMATION
  Report Type: 
  Country: GB (occurrence: GB)
  Receive Date: 20110106
  Receipt Date: 20121113
  Transmission Date: 20130627
  Serious: Yes (Death, Other)
  Sender: FDA-Public Use
  Company Number: GB-ABBOTT-10P-167-0694321-00

PATIENT
  Age: 46 Year
  Sex: Female

DRUGS (3)
  1. EPILIM [Suspect]
     Indication: EPILEPSY
     Dosage: 1.5 GRAMS DAILY
     Route: 048
  2. CLOZARIL [Suspect]
     Indication: SCHIZOPHRENIA
     Route: 048
     Dates: start: 20081104
  3. CITALOPRAM [Concomitant]
     Indication: PRODUCT USED FOR UNKNOWN INDICATION

REACTIONS (8)
  - Toxicity to various agents [Fatal]
  - Back pain [Unknown]
  - Apnoea [Unknown]
  - Confusional state [Unknown]
  - Cyanosis [Unknown]
  - Obesity [Unknown]
  - Convulsion [Unknown]
  - Fall [Unknown]
